FAERS Safety Report 12810679 (Version 4)
Quarter: 2018Q1

REPORT INFORMATION
  Report Type: Report from Study
  Country: US (occurrence: US)
  Receive Date: 20161005
  Receipt Date: 20180306
  Transmission Date: 20180508
  Serious: Yes (Other)
  Sender: FDA-Public Use
  Company Number: US-EMD SERONO-E2B_80050434

PATIENT
  Sex: Male
  Weight: 75 kg

DRUGS (2)
  1. REBIF [Suspect]
     Active Substance: INTERFERON BETA-1A
     Indication: MULTIPLE SCLEROSIS
     Route: 058
     Dates: start: 20080412, end: 201610
  2. REBIF [Suspect]
     Active Substance: INTERFERON BETA-1A
     Route: 058
     Dates: start: 20170516

REACTIONS (4)
  - Staphylococcal infection [Recovering/Resolving]
  - Injection site abscess [Unknown]
  - Lack of injection site rotation [Unknown]
  - Injection site infection [Recovering/Resolving]

NARRATIVE: CASE EVENT DATE: 2016
